FAERS Safety Report 19243831 (Version 1)
Quarter: 2021Q2

REPORT INFORMATION
  Report Type: Spontaneous
  Country: GB (occurrence: GB)
  Receive Date: 20210511
  Receipt Date: 20210511
  Transmission Date: 20210717
  Serious: Yes (Disabling)
  Sender: FDA-Public Use
  Company Number: XI-ALLERGAN-2117909US

PATIENT
  Sex: Male

DRUGS (7)
  1. TRAZODONE [Concomitant]
     Active Substance: TRAZODONE HYDROCHLORIDE
     Indication: ANTIDEPRESSANT THERAPY
     Dosage: 50MG INITIALLY INCREASED TO 100MG DAILY THEN REDUCED TO 50MG BEFORE STOPPING
     Route: 048
     Dates: start: 2015, end: 201507
  2. RISPERIDONE. [Concomitant]
     Active Substance: RISPERIDONE
     Indication: PRODUCT USED FOR UNKNOWN INDICATION
     Route: 048
  3. TEMAZEPAM. [Concomitant]
     Active Substance: TEMAZEPAM
     Indication: POOR QUALITY SLEEP
     Dosage: 10 MG, QD
     Route: 048
  4. SERTRALINE [Concomitant]
     Active Substance: SERTRALINE HYDROCHLORIDE
     Indication: ANTIDEPRESSANT THERAPY
     Dosage: 50MG INITIALLY THEN 100MG
     Route: 048
     Dates: start: 2014
  5. ESCITALOPRAM OXALATE ? BP [Suspect]
     Active Substance: ESCITALOPRAM OXALATE
     Indication: ANTIDEPRESSANT THERAPY
     Dosage: 10 MG, QD
     Route: 048
     Dates: start: 201507, end: 201509
  6. CITALOPRAM [Concomitant]
     Active Substance: CITALOPRAM HYDROBROMIDE
     Indication: PRODUCT USED FOR UNKNOWN INDICATION
     Dosage: 10 MG INITIALLY
     Dates: start: 201507
  7. MIRTAZAPINE HYDROCHLORIDE [Concomitant]
     Active Substance: MIRTAZAPINE
     Indication: ANTIDEPRESSANT THERAPY
     Dosage: 7.5MG UPTITRATED TO 45MG DAILY THEN REDUCED DOWN TO STOP
     Route: 048
     Dates: start: 2014, end: 2015

REACTIONS (10)
  - Hallucination, visual [Unknown]
  - Hallucination, auditory [Unknown]
  - Feeling abnormal [Unknown]
  - Suicidal ideation [Unknown]
  - Mood swings [Unknown]
  - Anger [Unknown]
  - Suicide attempt [Unknown]
  - Irritability [Unknown]
  - Intrusive thoughts [Unknown]
  - Agitation [Unknown]
